FAERS Safety Report 11916046 (Version 1)
Quarter: 2016Q1

REPORT INFORMATION
  Report Type: Spontaneous
  Country: US (occurrence: None)
  Receive Date: 20160113
  Receipt Date: 20160113
  Transmission Date: 20160526
  Serious: Yes (Life-Threatening)
  Sender: FDA-Public Use
  Company Number: None

PATIENT
  Age: 14 Year
  Sex: Male
  Weight: 174 kg

DRUGS (1)
  1. KETAMINE [Suspect]
     Active Substance: KETAMINE
     Indication: SEDATION
     Dates: start: 20160112, end: 20160112

REACTIONS (3)
  - Product quality issue [None]
  - Product selection error [None]
  - Apnoea [None]

NARRATIVE: CASE EVENT DATE: 20160112
